FAERS Safety Report 5511236-0 (Version None)
Quarter: 2007Q4

REPORT INFORMATION
  Report Type: 
  Country: None (occurrence: None)
  Receive Date: 20071109
  Receipt Date: 20071106
  Transmission Date: 20080405
  Serious: Yes (Hospitalization)
  Sender: FDA-Public Use
  Company Number: US-BRISTOL-MYERS SQUIBB COMPANY-13905567

PATIENT
  Age: 3 Year
  Sex: Male
  Weight: 13 kg

DRUGS (1)
  1. SPRYCEL [Suspect]
     Indication: CHRONIC MYELOID LEUKAEMIA
     Dosage: 5TH COURSE END DATE:28AUG07,6TH COURSE STARTED DATE:29AUG07; 65 MG/M2,PO, BID(EXCEPT D1,CYCLE1, QD)
     Route: 048
     Dates: start: 20070829, end: 20070831

REACTIONS (6)
  - COLITIS [None]
  - DIARRHOEA [None]
  - HAEMANGIOMA [None]
  - HAEMOGLOBIN DECREASED [None]
  - HYPOTENSION [None]
  - LARGE INTESTINAL HAEMORRHAGE [None]
